FAERS Safety Report 8522954-4 (Version None)
Quarter: 2012Q3

REPORT INFORMATION
  Report Type: 
  Country: None (occurrence: None)
  Receive Date: 20120720
  Receipt Date: 20120613
  Transmission Date: 20120928
  Serious: No
  Sender: FDA-Public Use
  Company Number: US-BIOGENIDEC-2012BI021204

PATIENT
  Age: 64 Year
  Sex: Female

DRUGS (5)
  1. AVONEX [Suspect]
     Route: 030
     Dates: start: 20120606
  2. AVONEX [Suspect]
     Route: 030
     Dates: start: 19970301
  3. AVONEX [Suspect]
     Route: 030
     Dates: end: 20120501
  4. AVONEX [Suspect]
     Indication: MULTIPLE SCLEROSIS
     Route: 030
     Dates: start: 19960601
  5. IBUPROFEN [Concomitant]
     Indication: ARTHROPATHY
     Route: 048
     Dates: end: 19960101

REACTIONS (3)
  - OEDEMA [None]
  - INJECTION SITE PAIN [None]
  - INJECTION SITE REACTION [None]
